FAERS Safety Report 7327361-8 (Version None)
Quarter: 2011Q1

REPORT INFORMATION
  Report Type: 
  Country: None (occurrence: None)
  Receive Date: 20110302
  Receipt Date: 20110223
  Transmission Date: 20110831
  Serious: Yes (Hospitalization)
  Sender: FDA-Public Use
  Company Number: US-US-EMD SERONO, INC.-7034077

PATIENT
  Sex: Female

DRUGS (2)
  1. REBIF [Suspect]
     Route: 058
     Dates: start: 20110129
  2. REBIF [Suspect]
     Indication: MULTIPLE SCLEROSIS
     Route: 058
     Dates: start: 20101201, end: 20110126

REACTIONS (7)
  - ABDOMINAL PAIN UPPER [None]
  - POST PROCEDURAL HAEMORRHAGE [None]
  - DEPRESSION [None]
  - HEADACHE [None]
  - FEELING ABNORMAL [None]
  - FATIGUE [None]
  - URINE OUTPUT DECREASED [None]
